FAERS Safety Report 6100288-5 (Version None)
Quarter: 2009Q1

REPORT INFORMATION
  Report Type: 
  Country: None (occurrence: None)
  Receive Date: 20090302
  Receipt Date: 20090302
  Transmission Date: 20090719
  Serious: Yes (Life-Threatening, Hospitalization, Disabling, Other)
  Sender: FDA-Public Use
  Company Number: None

PATIENT
  Age: 24 Year
  Sex: Male
  Weight: 72.5755 kg

DRUGS (1)
  1. SINGULAIR [Suspect]
     Indication: ASTHMA
     Dosage: 10/Q DAY

REACTIONS (9)
  - ANHEDONIA [None]
  - APPARENT LIFE THREATENING EVENT [None]
  - DEEP VEIN THROMBOSIS [None]
  - EXERCISE TOLERANCE DECREASED [None]
  - GENERAL PHYSICAL HEALTH DETERIORATION [None]
  - HYPERSENSITIVITY [None]
  - PULMONARY THROMBOSIS [None]
  - THROMBOSIS [None]
  - VASCULITIS [None]
